FAERS Safety Report 5099425-3 (Version None)
Quarter: 2006Q3

REPORT INFORMATION
  Report Type: 
  Country: None (occurrence: None)
  Receive Date: 20060906
  Receipt Date: 20060825
  Transmission Date: 20061208
  Serious: Yes (Other)
  Sender: FDA-Public Use
  Company Number: 2006103951

PATIENT
  Sex: 0

DRUGS (1)
  1. GEODON [Suspect]
     Indication: DRUG USE FOR UNKNOWN INDICATION
     Dosage: 160 MG (80 MG,2 IN 1 D)

REACTIONS (2)
  - TARDIVE DYSKINESIA [None]
  - WEIGHT DECREASED [None]
